FAERS Safety Report 9061567 (Version 1)
Quarter: 2013Q1

REPORT INFORMATION
  Report Type: Spontaneous
  Country: US (occurrence: None)
  Receive Date: 20130208
  Receipt Date: 20130208
  Transmission Date: 20140127
  Serious: Yes (Hospitalization)
  Sender: FDA-Public Use
  Company Number: None

PATIENT
  Age: 82 Year
  Sex: Male
  Weight: 73 kg

DRUGS (12)
  1. WARFARIN [Suspect]
     Indication: ATRIAL FIBRILLATION
     Route: 048
     Dates: start: 20120106, end: 20120213
  2. ASPIRIN [Concomitant]
  3. CALCIUM + VITAMIN D [Concomitant]
  4. CARVEDILOL [Concomitant]
  5. DIGOXIN [Concomitant]
  6. FLUOXETINE [Concomitant]
  7. LISINOPRIL [Concomitant]
  8. MULTIVITAMIN [Concomitant]
  9. FISH OIL [Concomitant]
  10. OMEPRAZOLE [Concomitant]
  11. PRAVASTATIN [Concomitant]
  12. PSYLLIUM [Concomitant]

REACTIONS (2)
  - Gastrointestinal haemorrhage [None]
  - Arteriovenous malformation [None]
